FAERS Safety Report 4558842-8 (Version None)
Quarter: 2005Q1

REPORT INFORMATION
  Report Type: 
  Country: None (occurrence: None)
  Receive Date: 20050121
  Receipt Date: 20030922
  Transmission Date: 20050727
  Serious: Yes (Hospitalization)
  Sender: FDA-Public Use
  Company Number: ES-AMGEN-UK048435

PATIENT
  Sex: Female

DRUGS (4)
  1. KINERET [Suspect]
     Indication: RHEUMATOID ARTHRITIS
     Dosage: 100 MG
     Route: 058
     Dates: start: 20030320
  2. METHYLPREDNISOLONE [Concomitant]
     Dosage: 8 MG
     Route: 048
  3. METHOTREXATE [Concomitant]
     Dosage: 10 MG
     Route: 030
  4. INDOMETHACIN [Concomitant]
     Dosage: 125 MG
     Route: 048

REACTIONS (1)
  - GASTROENTERITIS SALMONELLA [None]
